FAERS Safety Report 10509136 (Version 1)
Quarter: 2014Q4

REPORT INFORMATION
  Report Type: Spontaneous
  Country: GB (occurrence: GB)
  Receive Date: 20141009
  Receipt Date: 20141009
  Transmission Date: 20150528
  Serious: Yes (Other)
  Sender: FDA-Public Use
  Company Number: GB-WATSON-2014-21518

PATIENT
  Age: 18 Year
  Sex: Male

DRUGS (6)
  1. SERTRALINE HYDROCHLORIDE (UNKNOWN) [Suspect]
     Active Substance: SERTRALINE HYDROCHLORIDE
     Indication: OBSESSIVE-COMPULSIVE DISORDER
     Dosage: 200 MG, UNKNOWN
     Route: 065
  2. LUSTRAL [Suspect]
     Active Substance: SERTRALINE HYDROCHLORIDE
     Dosage: 100 MG, DAILY
     Route: 065
  3. SERTRALINE HYDROCHLORIDE (UNKNOWN) [Suspect]
     Active Substance: SERTRALINE HYDROCHLORIDE
     Dosage: 100 MG, DAILY
     Route: 065
  4. LUSTRAL [Suspect]
     Active Substance: SERTRALINE HYDROCHLORIDE
     Indication: OBSESSIVE-COMPULSIVE DISORDER
     Dosage: 200 MG, UNKNOWN
     Route: 065
  5. LUSTRAL [Suspect]
     Active Substance: SERTRALINE HYDROCHLORIDE
     Dosage: 150 MG, DAILY
     Route: 065
  6. SERTRALINE HYDROCHLORIDE (UNKNOWN) [Suspect]
     Active Substance: SERTRALINE HYDROCHLORIDE
     Dosage: 150 MG, DAILY
     Route: 065

REACTIONS (8)
  - Dysuria [Unknown]
  - Abnormal dreams [Unknown]
  - Gait disturbance [Unknown]
  - Micturition disorder [Unknown]
  - Malaise [Unknown]
  - Blood cholesterol increased [Unknown]
  - Urine output decreased [Unknown]
  - Urinary retention [Unknown]
